FAERS Safety Report 12613928 (Version 2)
Quarter: 2016Q3

REPORT INFORMATION
  Report Type: Spontaneous
  Country: US (occurrence: US)
  Receive Date: 20160802
  Receipt Date: 20160808
  Transmission Date: 20161109
  Serious: No
  Sender: FDA-Public Use
  Company Number: US-PFIZER INC-2016354752

PATIENT
  Age: 57 Year
  Sex: Female

DRUGS (2)
  1. IBRANCE [Suspect]
     Active Substance: PALBOCICLIB
     Dosage: UNK, CYCLIC (ONE WEEK ON AND ONE WEEK OFF)
  2. IBRANCE [Suspect]
     Active Substance: PALBOCICLIB
     Indication: BREAST CANCER FEMALE
     Dosage: 125 MG, (1 CAPSULE BY MOUTH DAILY FOR DAYS 1-21 EVERY 28 DAYS)
     Route: 048
     Dates: start: 201605, end: 20160729

REACTIONS (3)
  - Paraesthesia [Recovering/Resolving]
  - Rash [Recovered/Resolved]
  - White blood cell count decreased [Unknown]
